FAERS Safety Report 12092825 (Version 1)
Quarter: 2016Q1

REPORT INFORMATION
  Report Type: Spontaneous
  Country: US (occurrence: US)
  Receive Date: 20160219
  Receipt Date: 20160219
  Transmission Date: 20160526
  Serious: No
  Sender: FDA-Public Use
  Company Number: US-BRISTOL-MYERS SQUIBB COMPANY-BMS-2016-002087

PATIENT
  Age: 23 Year
  Sex: Male

DRUGS (1)
  1. ARIPIPRAZOLE. [Suspect]
     Active Substance: ARIPIPRAZOLE
     Dosage: 1 TAB, QD
     Route: 048
     Dates: start: 2015

REACTIONS (2)
  - Panic attack [Unknown]
  - Nervousness [Unknown]

NARRATIVE: CASE EVENT DATE: 201505
